FAERS Safety Report 17326788 (Version 1)
Quarter: 2020Q1

REPORT INFORMATION
  Report Type: Spontaneous
  Country: US (occurrence: US)
  Receive Date: 20200127
  Receipt Date: 20200127
  Transmission Date: 20200409
  Serious: No
  Sender: FDA-Public Use
  Company Number: US-ABBVIE-19S-163-2694200-00

PATIENT
  Age: 81 Year
  Sex: Male

DRUGS (2)
  1. XTANDI [Suspect]
     Active Substance: ENZALUTAMIDE
     Indication: PROSTATE CANCER METASTATIC
     Route: 048
     Dates: start: 2018
  2. LUPRON [Suspect]
     Active Substance: LEUPROLIDE ACETATE
     Indication: PRODUCT USED FOR UNKNOWN INDICATION
     Route: 065
     Dates: start: 2012

REACTIONS (7)
  - Night sweats [Unknown]
  - Pain in extremity [Recovered/Resolved]
  - Hot flush [Unknown]
  - Joint swelling [Recovered/Resolved]
  - Toothache [Unknown]
  - Swelling [Unknown]
  - Sciatica [Unknown]

NARRATIVE: CASE EVENT DATE: 2019
